FAERS Safety Report 6957760-5 (Version None)
Quarter: 2010Q3

REPORT INFORMATION
  Report Type: 
  Country: None (occurrence: None)
  Receive Date: 20100831
  Receipt Date: 20100819
  Transmission Date: 20110219
  Serious: Yes (Hospitalization)
  Sender: FDA-Public Use
  Company Number: JP-ALEXION-A201000893

PATIENT
  Age: 42 Year
  Sex: Male

DRUGS (7)
  1. SOLIRIS [Suspect]
     Indication: PAROXYSMAL NOCTURNAL HAEMOGLOBINURIA
     Dosage: 600 MG, QW
     Route: 042
     Dates: start: 20100308, end: 20100329
  2. SOLIRIS [Suspect]
     Dosage: 900 MG, UNK
     Route: 042
     Dates: start: 20100705, end: 20100802
  3. PURIMBORAN [Concomitant]
     Dosage: 15 MG, QD
  4. PSL [Concomitant]
     Dosage: 10 MG, QD
  5. BLOOD AND RELATED PRODUCTS [Concomitant]
     Dosage: UNK
     Dates: start: 20100723, end: 20100723
  6. BLOOD AND RELATED PRODUCTS [Concomitant]
     Dosage: UNK
     Dates: start: 20100724, end: 20100724
  7. BLOOD AND RELATED PRODUCTS [Concomitant]
     Dosage: UNK
     Dates: start: 20100726, end: 20100726

REACTIONS (2)
  - HAEMOLYSIS [None]
  - HERPES ZOSTER [None]
